FAERS Safety Report 16063967 (Version 2)
Quarter: 2020Q1

REPORT INFORMATION
  Report Type: Spontaneous
  Country: GB (occurrence: GB)
  Receive Date: 20190312
  Receipt Date: 20200130
  Transmission Date: 20200409
  Serious: Yes (Other)
  Sender: FDA-Public Use
  Company Number: GB-PFIZER INC-2019102579

PATIENT
  Age: 30 Year
  Sex: Female
  Weight: 80 kg

DRUGS (4)
  1. NEXPLANON [Concomitant]
     Active Substance: ETONOGESTREL
     Dosage: 68 MG, UNK
     Dates: start: 20181126
  2. RANITIDINE. [Concomitant]
     Active Substance: RANITIDINE
     Indication: DYSPEPSIA
     Dosage: 300 MG, 1X/DAY
     Dates: start: 20190121
  3. LAMOTRIGINE. [Interacting]
     Active Substance: LAMOTRIGINE
     Indication: EPILEPSY
     Dosage: 100 MG, 1X/DAY
  4. DOXYCYCLINE MONOHYDRATE [Suspect]
     Active Substance: DOXYCYCLINE
     Indication: UPPER RESPIRATORY TRACT INFECTION
     Dosage: 100 MG, 1X/DAY
     Route: 048
     Dates: start: 20190202, end: 20190206

REACTIONS (3)
  - Epilepsy [Recovered/Resolved]
  - Drug interaction [Recovered/Resolved]
  - Disease recurrence [Recovered/Resolved]

NARRATIVE: CASE EVENT DATE: 20190206
